FAERS Safety Report 19202513 (Version 7)
Quarter: 2021Q2

REPORT INFORMATION
  Report Type: Report from Study
  Country: US (occurrence: US)
  Receive Date: 20210430
  Receipt Date: 20210616
  Transmission Date: 20210717
  Serious: Yes (Hospitalization)
  Sender: FDA-Public Use
  Company Number: US-GLAXOSMITHKLINE-US2021GSK093501

PATIENT
  Age: 69 Year
  Sex: Female
  Weight: 53.52 kg

DRUGS (12)
  1. PACLITAXEL. [Suspect]
     Active Substance: PACLITAXEL
     Indication: OVARIAN CANCER
     Dosage: 270 MG, U
     Route: 042
     Dates: start: 20201008, end: 20201008
  2. CISPLATIN. [Concomitant]
     Active Substance: CISPLATIN
     Indication: OVARIAN CANCER
     Dosage: UNK
     Route: 042
  3. DOSTARLIMAB [Suspect]
     Active Substance: DOSTARLIMAB
     Dosage: 1000 MG
     Dates: start: 20210324, end: 20210324
  4. BEVACIZUMAB. [Suspect]
     Active Substance: BEVACIZUMAB
     Indication: OVARIAN CANCER
     Dosage: UNK
     Route: 042
  5. NIRAPARIB [Suspect]
     Active Substance: NIRAPARIB
     Dosage: 200 MG, QD
     Dates: start: 20210421, end: 20210425
  6. DOCETAXEL. [Concomitant]
     Active Substance: DOCETAXEL
     Indication: OVARIAN CANCER
     Dosage: UNK
     Route: 042
  7. NIRAPARIB [Suspect]
     Active Substance: NIRAPARIB
     Indication: OVARIAN CANCER
     Dosage: UNK
  8. CARBOPLATIN. [Suspect]
     Active Substance: CARBOPLATIN
     Dosage: 4 AUC
     Route: 042
     Dates: start: 20210303, end: 20210303
  9. DOSTARLIMAB [Suspect]
     Active Substance: DOSTARLIMAB
     Indication: OVARIAN CANCER
     Dosage: 500 MG
     Dates: start: 20201030, end: 20201030
  10. PACLITAXEL. [Suspect]
     Active Substance: PACLITAXEL
     Dosage: 210 MG, U
     Route: 042
     Dates: start: 20210303, end: 20210303
  11. MAGNESIUM [Concomitant]
     Active Substance: MAGNESIUM
     Indication: NUTRITIONAL SUPPLEMENTATION
     Dosage: 200 MG, QD
     Route: 048
     Dates: start: 20210414
  12. CARBOPLATIN. [Suspect]
     Active Substance: CARBOPLATIN
     Indication: OVARIAN CANCER
     Dosage: 5 AUC
     Route: 042
     Dates: start: 20201008, end: 20201008

REACTIONS (2)
  - Cardiomyopathy [Recovered/Resolved]
  - Delirium [Recovered/Resolved]

NARRATIVE: CASE EVENT DATE: 20210425
